FAERS Safety Report 6955612-8 (Version None)
Quarter: 2010Q3

REPORT INFORMATION
  Report Type: 
  Country: None (occurrence: None)
  Receive Date: 20100830
  Receipt Date: 20100819
  Transmission Date: 20110219
  Serious: Yes (Other)
  Sender: FDA-Public Use
  Company Number: AU-PFIZER INC-2010089897

PATIENT
  Age: 72 Year
  Sex: Male

DRUGS (7)
  1. CHAMPIX [Suspect]
     Indication: SMOKING CESSATION THERAPY
     Dosage: 1 MG, 2X/DAY
     Route: 048
     Dates: start: 20100601, end: 20100717
  2. LIPITOR [Concomitant]
     Indication: HYPOLIPIDAEMIA
     Dosage: 80 MG, 1X/DAY
     Route: 048
     Dates: start: 20031127
  3. BETALOC [Concomitant]
     Indication: HYPERTENSION
     Dosage: 100 MG, 2X/DAY
     Route: 048
     Dates: start: 20031127
  4. AMLODIPINE BESYLATE/VALSARTAN [Concomitant]
     Indication: HYPERTENSION
     Dosage: [AMLODIPINE BESYLATE 10 MG]/[VALSARTAN 160 MG], DAILY
     Route: 048
     Dates: start: 20100511
  5. PARIET [Concomitant]
     Dosage: 20 MG, UNK
  6. ALDACTONE [Concomitant]
     Indication: HYPERTENSION
     Dosage: 100 MG, 1X/DAY
     Route: 048
     Dates: start: 20100511
  7. ASPIRIN [Concomitant]
     Dosage: 100 MG, UNK

REACTIONS (8)
  - ABDOMINAL DISTENSION [None]
  - ABNORMAL DREAMS [None]
  - HYPERHIDROSIS [None]
  - HYPOTENSION [None]
  - INSOMNIA [None]
  - NAUSEA [None]
  - PALLOR [None]
  - VOMITING [None]
